FAERS Safety Report 9033994 (Version 1)
Quarter: 2013Q1

REPORT INFORMATION
  Report Type: Spontaneous
  Country: US (occurrence: US)
  Receive Date: 20130128
  Receipt Date: 20130128
  Transmission Date: 20140127
  Serious: Yes (Hospitalization)
  Sender: FDA-Public Use
  Company Number: US-AMGEN-USASP2012064302

PATIENT
  Age: 35 Year
  Sex: Female

DRUGS (1)
  1. ENBREL [Suspect]
     Indication: RHEUMATOID ARTHRITIS
     Dosage: 50 MG, QWK
     Dates: start: 20111223, end: 201205

REACTIONS (5)
  - Cystitis [Recovered/Resolved]
  - Kidney infection [Recovered/Resolved]
  - Oligomenorrhoea [Recovered/Resolved]
  - Drug ineffective [Recovered/Resolved]
  - Infection [Recovered/Resolved]
